FAERS Safety Report 25865649 (Version 1)
Quarter: 2025Q3

REPORT INFORMATION
  Report Type: Report from Study
  Country: MX (occurrence: MX)
  Receive Date: 20250930
  Receipt Date: 20250930
  Transmission Date: 20251020
  Serious: Yes (Hospitalization, Other)
  Sender: TAKEDA
  Company Number: MX-TAKEDA-2025TUS085141

PATIENT
  Age: 40 Year
  Sex: Male
  Weight: 74 kg

DRUGS (1)
  1. PONATINIB [Suspect]
     Active Substance: PONATINIB
     Indication: Chronic myeloid leukaemia
     Dosage: 45 MILLIGRAM, QD
     Dates: start: 20240827, end: 20250911

REACTIONS (8)
  - Toxicity to various agents [Unknown]
  - Myocardial infarction [Unknown]
  - Blood glucose decreased [Unknown]
  - Skin infection [Unknown]
  - Platelet count decreased [Unknown]
  - White blood cell count decreased [Unknown]
  - Pyrexia [Unknown]
  - Asthenia [Unknown]

NARRATIVE: CASE EVENT DATE: 20250911
